FAERS Safety Report 5968789-8 (Version None)
Quarter: 2008Q4

REPORT INFORMATION
  Report Type: 
  Country: None (occurrence: None)
  Receive Date: 20081125
  Receipt Date: 20081125
  Transmission Date: 20090506
  Serious: Yes (Hospitalization)
  Sender: FDA-Public Use
  Company Number: None

PATIENT
  Age: 39 Year
  Sex: Female
  Weight: 83.9154 kg

DRUGS (1)
  1. HUMIRA [Suspect]
     Indication: PSORIATIC ARTHROPATHY
     Dosage: 40 MG INJECTIONS BI WEEKLY SUBDERMAL
     Dates: start: 20060301, end: 20081125

REACTIONS (6)
  - CHEST PAIN [None]
  - DYSPNOEA [None]
  - LYMPHADENOPATHY [None]
  - MUSCULOSKELETAL PAIN [None]
  - SINUSITIS [None]
  - STAPHYLOCOCCAL INFECTION [None]
